FAERS Safety Report 25095977 (Version 1)
Quarter: 2025Q1

REPORT INFORMATION
  Report Type: Spontaneous
  Country: CH (occurrence: CH)
  Receive Date: 20250319
  Receipt Date: 20250319
  Transmission Date: 20250409
  Serious: Yes (Death, Other)
  Sender: AMGEN
  Company Number: CH-AMGEN-CHESP2025051072

PATIENT
  Age: 76 Year
  Sex: Male

DRUGS (4)
  1. XGEVA [Suspect]
     Active Substance: DENOSUMAB
     Indication: Metastases to bone
     Route: 065
  2. CARBOPLATIN [Concomitant]
     Active Substance: CARBOPLATIN
     Route: 040
  3. PACLITAXEL [Concomitant]
     Active Substance: PACLITAXEL
     Route: 040
  4. NIVOLUMAB [Concomitant]
     Active Substance: NIVOLUMAB
     Route: 058

REACTIONS (2)
  - Post procedural complication [Fatal]
  - Osteonecrosis [Unknown]
